FAERS Safety Report 6066060-X (Version None)
Quarter: 2009Q1

REPORT INFORMATION
  Report Type: 
  Country: None (occurrence: None)
  Receive Date: 20090205
  Receipt Date: 20090123
  Transmission Date: 20090719
  Serious: Yes (Hospitalization)
  Sender: FDA-Public Use
  Company Number: US-AMGEN-KDL330012

PATIENT
  Sex: Male

DRUGS (9)
  1. ARANESP [Suspect]
     Indication: ANAEMIA
     Route: 058
     Dates: start: 20081220
  2. FOLIC ACID [Concomitant]
  3. IRON [Concomitant]
  4. FERROUS SULFATE TAB [Concomitant]
  5. LOVENOX [Concomitant]
  6. PRILOSEC [Concomitant]
  7. LIDOCAINE [Concomitant]
  8. SKELAXIN [Concomitant]
  9. PROGRAF [Concomitant]

REACTIONS (2)
  - HAEMATOCRIT DECREASED [None]
  - HAEMORRHAGE [None]
